FAERS Safety Report 7422923-1 (Version None)
Quarter: 2011Q2

REPORT INFORMATION
  Report Type: 
  Country: None (occurrence: None)
  Receive Date: 20110419
  Receipt Date: 20110401
  Transmission Date: 20111010
  Serious: Yes (Hospitalization, Other)
  Sender: FDA-Public Use
  Company Number: FR-SANOFI-AVENTIS-2011SA020301

PATIENT
  Age: 87 Year
  Sex: Male

DRUGS (7)
  1. LASIX [Suspect]
     Route: 048
     Dates: end: 20101213
  2. MICARDIS [Suspect]
     Route: 048
     Dates: end: 20101213
  3. CEBUTID [Suspect]
     Route: 048
     Dates: start: 20101209, end: 20101213
  4. DI ANTALVIC [Suspect]
     Route: 048
     Dates: start: 20101209, end: 20101213
  5. NEBIVOLOL HCL [Concomitant]
     Route: 048
  6. PREVISCAN [Suspect]
     Dosage: 3/4 TABLET OR ONE TABLET EVENING
     Route: 048
     Dates: end: 20101213
  7. CORDARONE [Concomitant]
     Route: 048

REACTIONS (4)
  - HAEMATURIA [None]
  - RENAL FAILURE ACUTE [None]
  - URINARY RETENTION [None]
  - INTERNATIONAL NORMALISED RATIO INCREASED [None]
